FAERS Safety Report 16962521 (Version 1)
Quarter: 2019Q4

REPORT INFORMATION
  Report Type: Spontaneous
  Country: FR (occurrence: FR)
  Receive Date: 20191025
  Receipt Date: 20191025
  Transmission Date: 20200122
  Serious: Yes (Other)
  Sender: FDA-Public Use
  Company Number: FR-FRESENIUS KABI-FK201911795

PATIENT
  Age: 52 Year
  Sex: Male

DRUGS (4)
  1. PROPOFOL (MANUFACTURER UNKNOWN) [Suspect]
     Active Substance: PROPOFOL
     Indication: ANAESTHESIA
     Route: 042
  2. ATRACURIUM [Suspect]
     Active Substance: ATRACURIUM
     Indication: ANAESTHESIA
     Route: 065
  3. SUFENTANIL [Suspect]
     Active Substance: SUFENTANIL
     Indication: ANAESTHESIA
     Route: 065
  4. DESFLURANE. [Suspect]
     Active Substance: DESFLURANE
     Indication: ANAESTHESIA
     Route: 065

REACTIONS (1)
  - Hyperthermia malignant [Recovering/Resolving]
